FAERS Safety Report 25959668 (Version 1)
Quarter: 2025Q4

REPORT INFORMATION
  Report Type: Spontaneous
  Country: US (occurrence: US)
  Receive Date: 20251026
  Receipt Date: 20251026
  Transmission Date: 20260118
  Serious: Yes (Other)
  Sender: SANOFI AVENTIS
  Company Number: US-SA-2025SA314156

PATIENT
  Age: 75 Year
  Sex: Male

DRUGS (1)
  1. DUPIXENT [Suspect]
     Active Substance: DUPILUMAB
     Dosage: 300 MG, QOW
     Route: 058

REACTIONS (8)
  - Loss of consciousness [Unknown]
  - Fatigue [Unknown]
  - Dizziness [Unknown]
  - Nasopharyngitis [Unknown]
  - Condition aggravated [Unknown]
  - Myalgia [Unknown]
  - Back pain [Unknown]
  - Headache [Unknown]
